FAERS Safety Report 16492437 (Version 1)
Quarter: 2019Q2

REPORT INFORMATION
  Report Type: Spontaneous
  Country: FR (occurrence: FR)
  Receive Date: 20190628
  Receipt Date: 20190628
  Transmission Date: 20190711
  Serious: Yes (Life-Threatening, Hospitalization, Other)
  Sender: FDA-Public Use
  Company Number: PHHY2018FR042853

PATIENT
  Age: 28 Year
  Sex: Male

DRUGS (2)
  1. GILENYA [Suspect]
     Active Substance: FINGOLIMOD HYDROCHLORIDE
     Indication: MULTIPLE SCLEROSIS
     Dosage: UNK
     Route: 065
  2. ALEMTUZUMAB [Suspect]
     Active Substance: ALEMTUZUMAB
     Indication: MULTIPLE SCLEROSIS
     Dosage: 12 MG, QD
     Route: 065
     Dates: start: 201506

REACTIONS (7)
  - Autoimmune haemolytic anaemia [Recovered/Resolved]
  - Pallor [Recovered/Resolved]
  - Tachypnoea [Recovered/Resolved]
  - Multiple sclerosis relapse [Recovering/Resolving]
  - Tachycardia [Recovered/Resolved]
  - Chromaturia [Recovered/Resolved]
  - Jaundice [Recovered/Resolved]

NARRATIVE: CASE EVENT DATE: 201503
